FAERS Safety Report 12381846 (Version 2)
Quarter: 2016Q2

REPORT INFORMATION
  Report Type: Report from Study
  Country: CN (occurrence: CN)
  Receive Date: 20160518
  Receipt Date: 20160627
  Transmission Date: 20160815
  Serious: Yes (Death, Hospitalization)
  Sender: FDA-Public Use
  Company Number: CN-PFIZER INC-2016246573

PATIENT
  Age: 50 Year
  Sex: Male
  Weight: 45 kg

DRUGS (1)
  1. SUNITINIB MALATE. [Suspect]
     Active Substance: SUNITINIB MALATE
     Indication: PANCREATIC NEUROENDOCRINE TUMOUR
     Dosage: 37.5 MG, 1X/DAY
     Dates: start: 20160315, end: 20160418

REACTIONS (1)
  - Death [Fatal]

NARRATIVE: CASE EVENT DATE: 20160419
